FAERS Safety Report 6345454-9 (Version None)
Quarter: 2009Q3

REPORT INFORMATION
  Report Type: 
  Country: None (occurrence: None)
  Receive Date: 20090909
  Receipt Date: 20090831
  Transmission Date: 20100115
  Serious: Yes (Hospitalization)
  Sender: FDA-Public Use
  Company Number: JP-ASTRAZENECA-2009SE11628

PATIENT
  Age: 32483 Day
  Sex: Female

DRUGS (13)
  1. KENZEN [Suspect]
     Indication: HYPERTENSION
     Route: 048
     Dates: end: 20090512
  2. TIMOPTIC [Suspect]
     Indication: OPEN ANGLE GLAUCOMA
     Route: 047
     Dates: end: 20090512
  3. EBIXA [Concomitant]
     Indication: DEMENTIA ALZHEIMER'S TYPE
     Route: 048
     Dates: end: 20090512
  4. EBIXA [Concomitant]
     Route: 048
     Dates: start: 20090515
  5. INEXIUM [Concomitant]
     Indication: DRUG USE FOR UNKNOWN INDICATION
     Route: 048
     Dates: end: 20090512
  6. INEXIUM [Concomitant]
     Route: 048
     Dates: start: 20090517
  7. ACTONEL [Concomitant]
     Indication: OSTEOPOROSIS
     Route: 048
     Dates: end: 20090512
  8. VASTAREL [Concomitant]
     Indication: DRUG USE FOR UNKNOWN INDICATION
     Route: 048
     Dates: end: 20090512
  9. VASTAREL [Concomitant]
     Route: 048
     Dates: start: 20090517
  10. DIFFU K [Concomitant]
     Indication: DRUG USE FOR UNKNOWN INDICATION
     Route: 048
     Dates: end: 20090512
  11. DIFFU K [Concomitant]
     Route: 048
     Dates: start: 20090517
  12. TIAPRIDAL [Concomitant]
     Indication: DRUG USE FOR UNKNOWN INDICATION
     Route: 048
     Dates: end: 20090512
  13. SERESTA [Concomitant]
     Indication: DRUG USE FOR UNKNOWN INDICATION
     Route: 048
     Dates: end: 20090512

REACTIONS (2)
  - BRADYCARDIA [None]
  - HYPOTENSION [None]
